FAERS Safety Report 12845767 (Version 2)
Quarter: 2016Q4

REPORT INFORMATION
  Report Type: Spontaneous
  Country: GB (occurrence: GB)
  Receive Date: 20161013
  Receipt Date: 20161020
  Transmission Date: 20170207
  Serious: Yes (Death, Other)
  Sender: FDA-Public Use
  Company Number: GB-TAKEDA-2016TUS018486

PATIENT
  Age: 37 Year
  Sex: Male
  Weight: 75 kg

DRUGS (3)
  1. MEZAVANT XL [Suspect]
     Active Substance: MESALAMINE
     Indication: PRODUCT USED FOR UNKNOWN INDICATION
     Dosage: 4.8 G, UNK
     Route: 065
     Dates: end: 201603
  2. AZATHIOPRINE. [Suspect]
     Active Substance: AZATHIOPRINE
     Indication: PRODUCT USED FOR UNKNOWN INDICATION
     Dosage: 100 MG, UNK
     Route: 065
  3. ENTYVIO [Suspect]
     Active Substance: VEDOLIZUMAB
     Indication: COLITIS ULCERATIVE
     Dosage: 300 MG, Q8WEEKS
     Route: 065
     Dates: start: 201506, end: 201603

REACTIONS (5)
  - Malignant bowel obstruction [Unknown]
  - Malignant peritoneal neoplasm [Unknown]
  - Colorectal adenocarcinoma [Fatal]
  - Perforation [Unknown]
  - Metastases to liver [Unknown]

NARRATIVE: CASE EVENT DATE: 201603
